FAERS Safety Report 18212635 (Version 1)
Quarter: 2020Q3

REPORT INFORMATION
  Report Type: Other
  Country: CN (occurrence: CN)
  Receive Date: 20200831
  Receipt Date: 20200831
  Transmission Date: 20201103
  Serious: Yes (Other)
  Sender: FDA-Public Use
  Company Number: CN-ROCHE-2021796

PATIENT
  Sex: Male
  Weight: 73 kg

DRUGS (4)
  1. AVASTIN [Suspect]
     Active Substance: BEVACIZUMAB
     Route: 041
     Dates: start: 20171128, end: 20200512
  2. AVASTIN [Suspect]
     Active Substance: BEVACIZUMAB
     Route: 041
     Dates: start: 20200817
  3. AVASTIN [Suspect]
     Active Substance: BEVACIZUMAB
     Dosage: 300/400 MG
     Route: 041
     Dates: end: 20190108
  4. AVASTIN [Suspect]
     Active Substance: BEVACIZUMAB
     Indication: RECTAL CANCER
     Dosage: ONGOING: NO
     Route: 041
     Dates: start: 20161203

REACTIONS (4)
  - Platelet count decreased [Recovered/Resolved]
  - Hernia [Recovering/Resolving]
  - Myelosuppression [Recovered/Resolved]
  - Abdominal infection [Unknown]

NARRATIVE: CASE EVENT DATE: 2018
